FAERS Safety Report 7964690 (Version 2)
Quarter: 2013Q3

REPORT INFORMATION
  Report Type: Report from Study
  Country: MW (occurrence: MW)
  Receive Date: 20110527
  Receipt Date: 20130829
  Transmission Date: 20140515
  Serious: Yes (Hospitalization)
  Sender: FDA-Public Use
  Company Number: MW-ABBOTT-11P-100-0726539-00

PATIENT
  Age: 33 Year
  Sex: Female

DRUGS (4)
  1. ALUVIA TABLETS [Suspect]
     Indication: HIV INFECTION
     Route: 048
     Dates: start: 20110325
  2. RALTEGRAVIR [Concomitant]
     Indication: HIV INFECTION
     Dates: start: 20110325
  3. COTRIMOXAZOLE [Concomitant]
     Indication: PRODUCT USED FOR UNKNOWN INDICATION
     Dates: start: 20061121
  4. GLIBENCLAMIDE [Concomitant]
     Indication: PRODUCT USED FOR UNKNOWN INDICATION
     Dates: start: 20110322, end: 20110513

REACTIONS (8)
  - Diabetic ketoacidosis [Unknown]
  - Pancreatitis [Unknown]
  - Abdominal pain [Unknown]
  - Cough [Unknown]
  - Pollakiuria [Unknown]
  - Plasmodium falciparum infection [Recovered/Resolved]
  - Anaemia [Recovered/Resolved]
  - Staphylococcal sepsis [Recovered/Resolved]
